FAERS Safety Report 18871763 (Version 2)
Quarter: 2021Q1

REPORT INFORMATION
  Report Type: Spontaneous
  Country: JP (occurrence: JP)
  Receive Date: 20210210
  Receipt Date: 20210316
  Transmission Date: 20210420
  Serious: Yes (Other)
  Sender: FDA-Public Use
  Company Number: NVSJ2021JP001898

PATIENT
  Age: 71 Year
  Sex: Male
  Weight: 58 kg

DRUGS (1)
  1. NEORAL [Suspect]
     Active Substance: CYCLOSPORINE
     Indication: MYASTHENIA GRAVIS
     Dosage: UNK, BID(ABOUT HALF A YEAR 100 MG IN THE MORNING AND 50 MG IN THE EVENING)
     Route: 048

REACTIONS (3)
  - Product use in unapproved indication [Unknown]
  - Disease recurrence [Unknown]
  - Myasthenia gravis [Unknown]
